FAERS Safety Report 8971699 (Version 1)
Quarter: 2012Q4

REPORT INFORMATION
  Report Type: 
  Country: US (occurrence: US)
  Receive Date: 20121217
  Receipt Date: 20121217
  Transmission Date: 20130627
  Serious: Yes (Hospitalization, Other)
  Sender: FDA-Public Use
  Company Number: US-BRISTOL-MYERS SQUIBB COMPANY-17189192

PATIENT
  Age: 59 Year
  Sex: Female
  Weight: 89.34 kg

DRUGS (2)
  1. AVALIDE [Suspect]
     Indication: HYPERTENSION
     Dosage: 1df: 150/12.5,Last filled on 17Oct12
  2. LIPITOR [Concomitant]

REACTIONS (3)
  - Loss of consciousness [Unknown]
  - Cerebrovascular accident [Unknown]
  - Cataract [Unknown]
